FAERS Safety Report 12095157 (Version 3)
Quarter: 2018Q2

REPORT INFORMATION
  Report Type: Spontaneous
  Country: US (occurrence: US)
  Receive Date: 20160219
  Receipt Date: 20180510
  Transmission Date: 20180711
  Serious: Yes (Other)
  Sender: FDA-Public Use
  Company Number: US-ASTRAZENECA-2016SE16691

PATIENT
  Age: 32172 Day
  Sex: Female
  Weight: 90.7 kg

DRUGS (15)
  1. BYETTA [Suspect]
     Active Substance: EXENATIDE
     Indication: BLOOD GLUCOSE ABNORMAL
     Route: 058
     Dates: start: 2003
  2. FUROSEMIDE. [Concomitant]
     Active Substance: FUROSEMIDE
  3. ASPIRIN. [Concomitant]
     Active Substance: ASPIRIN
  4. BYDUREON [Suspect]
     Active Substance: EXENATIDE
     Indication: TYPE 2 DIABETES MELLITUS
     Route: 065
     Dates: start: 20180410
  5. BYETTA [Suspect]
     Active Substance: EXENATIDE
     Indication: TYPE 2 DIABETES MELLITUS
     Route: 058
     Dates: start: 2012, end: 20180305
  6. AMLODIPINE [Concomitant]
     Active Substance: AMLODIPINE BESYLATE
     Indication: BLOOD PRESSURE ABNORMAL
  7. METHYLDOPA. [Concomitant]
     Active Substance: METHYLDOPA
  8. POTASSIUM CHLORIDE. [Concomitant]
     Active Substance: POTASSIUM CHLORIDE
     Dosage: TWO TIMES A DAY
  9. BYETTA [Suspect]
     Active Substance: EXENATIDE
     Indication: TYPE 2 DIABETES MELLITUS
     Route: 058
     Dates: start: 2003
  10. BYETTA [Suspect]
     Active Substance: EXENATIDE
     Indication: BLOOD GLUCOSE ABNORMAL
     Route: 058
     Dates: start: 2012, end: 20180305
  11. CLOPIDOGREL [Concomitant]
     Active Substance: CLOPIDOGREL BISULFATE
  12. MULTIVITAMIN [Concomitant]
     Active Substance: VITAMINS
  13. ISOSORBIDE. [Concomitant]
     Active Substance: ISOSORBIDE
     Indication: BLOOD PRESSURE ABNORMAL
  14. LUTEIN [Concomitant]
     Active Substance: LUTEIN
     Indication: MACULAR DEGENERATION
  15. PRESERVISION [Concomitant]
     Active Substance: MINERALS\VITAMINS
     Indication: MACULAR DEGENERATION

REACTIONS (11)
  - Myocardial infarction [Unknown]
  - Diabetes mellitus inadequate control [Unknown]
  - Heart valve incompetence [Unknown]
  - Blood pressure increased [Unknown]
  - Hypoglycaemia [Unknown]
  - Therapy cessation [Unknown]
  - Memory impairment [Unknown]
  - Macular degeneration [Not Recovered/Not Resolved]
  - Product solubility abnormal [Unknown]
  - Overdose [Unknown]
  - Blood glucose decreased [Unknown]

NARRATIVE: CASE EVENT DATE: 2008
